FAERS Safety Report 5266741-1 (Version None)
Quarter: 2007Q1

REPORT INFORMATION
  Report Type: 
  Country: None (occurrence: None)
  Receive Date: 20070305
  Receipt Date: 20070202
  Transmission Date: 20070707
  Serious: Yes (Other)
  Sender: FDA-Public Use
  Company Number: B0460337A

PATIENT
  Age: 86 Year
  Sex: Male

DRUGS (1)
  1. ADVAIR UNSPECIFIED INHALER DEVICE (FLUTICASONE+SALMETEROL) [Suspect]
     Indication: ASTHMA
     Dosage: INHALED
     Route: 055

REACTIONS (2)
  - DYSPNOEA [None]
  - VOCAL CORD PARALYSIS [None]
